FAERS Safety Report 9355150 (Version 1)
Quarter: 2013Q2

REPORT INFORMATION
  Report Type: Spontaneous
  Country: FR (occurrence: FR)
  Receive Date: 20130619
  Receipt Date: 20130619
  Transmission Date: 20140414
  Serious: Yes (Other)
  Sender: FDA-Public Use
  Company Number: PHHY2013FR060421

PATIENT
  Age: 33 Year
  Sex: Female

DRUGS (8)
  1. TRILEPTAL [Suspect]
     Indication: AFFECTIVE DISORDER
     Dosage: 1050 MG, QD
     Route: 048
     Dates: start: 201207
  2. TRAMADOL [Suspect]
     Dosage: 100 MG, QD
     Route: 048
     Dates: start: 20121017, end: 20121017
  3. TRAMADOL [Suspect]
     Dosage: 200 MG, QD
     Route: 048
     Dates: start: 20121018, end: 20121018
  4. TRAMADOL [Suspect]
     Dosage: 100 MG, QD
     Route: 048
     Dates: start: 20121019, end: 20121020
  5. TRAMADOL [Suspect]
     Dosage: 33 MG, QD
     Route: 048
     Dates: start: 20121023, end: 20121026
  6. TETRAZEPAM [Concomitant]
     Indication: BACK PAIN
     Dosage: 50 MG, QD
     Route: 048
     Dates: start: 2010
  7. DESOGESTREL [Concomitant]
     Indication: CONTRACEPTION
     Dosage: 75 UG, QD
     Route: 048
     Dates: start: 2010
  8. MONO-TILDIEM - SLOW RELEASE [Concomitant]
     Indication: HYPERTENSION
     Dosage: 200 MG, QD
     Route: 048
     Dates: start: 2010

REACTIONS (5)
  - Cold sweat [Recovered/Resolved]
  - Muscle spasms [Recovered/Resolved]
  - Nausea [Recovered/Resolved]
  - Insomnia [Recovered/Resolved]
  - Dizziness [Recovered/Resolved]
